FAERS Safety Report 15525911 (Version 2)
Quarter: 2018Q4

REPORT INFORMATION
  Report Type: Spontaneous
  Country: US (occurrence: US)
  Receive Date: 20181018
  Receipt Date: 20181204
  Transmission Date: 20190205
  Serious: No
  Sender: FDA-Public Use
  Company Number: US-TEVA-2018-US-961501

PATIENT
  Age: 59 Year
  Sex: Female
  Weight: 58 kg

DRUGS (4)
  1. AJOVY [Suspect]
     Active Substance: FREMANEZUMAB-VFRM
     Indication: MIGRAINE
     Dosage: 7.5 MILLIGRAM DAILY;
     Route: 058
     Dates: start: 20181002
  2. TORDAL [Concomitant]
  3. ARMOUR THYROID [Concomitant]
     Active Substance: THYROID, PORCINE
  4. REGLAN [Concomitant]
     Active Substance: METOCLOPRAMIDE HYDROCHLORIDE

REACTIONS (5)
  - Panic attack [Unknown]
  - Throat tightness [Unknown]
  - Sensation of foreign body [Unknown]
  - Injection site pain [Unknown]
  - Dysphagia [Unknown]

NARRATIVE: CASE EVENT DATE: 20181003
